FAERS Safety Report 20771220 (Version 1)
Quarter: 2022Q2

REPORT INFORMATION
  Report Type: Spontaneous
  Country: US (occurrence: US)
  Receive Date: 20220429
  Receipt Date: 20220429
  Transmission Date: 20220721
  Serious: No
  Sender: FDA-Public Use
  Company Number: US-PFIZER INC-2018013835

PATIENT
  Age: 37 Year
  Sex: Female
  Weight: 58 kg

DRUGS (1)
  1. LYRICA [Suspect]
     Active Substance: PREGABALIN
     Indication: Multiple sclerosis
     Dosage: 300 MG, 3X/DAY (1 CAPSULE ORAL THREE TIMES A DAY)
     Route: 048

REACTIONS (5)
  - Product prescribing error [Unknown]
  - Off label use [Unknown]
  - Prescribed overdose [Unknown]
  - Intentional product use issue [Unknown]
  - Feeling abnormal [Unknown]
